FAERS Safety Report 7552987-6 (Version None)
Quarter: 2011Q2

REPORT INFORMATION
  Report Type: 
  Country: None (occurrence: None)
  Receive Date: 20110616
  Receipt Date: 20110608
  Transmission Date: 20111010
  Serious: Yes (Hospitalization)
  Sender: FDA-Public Use
  Company Number: FR-TEVA-285869ISR

PATIENT
  Sex: Male
  Weight: 12.2 kg

DRUGS (3)
  1. CARBOPLATIN [Suspect]
     Indication: ASTROCYTOMA, LOW GRADE
     Route: 042
     Dates: start: 20091228, end: 20110404
  2. VINCRISTINE [Concomitant]
     Indication: ASTROCYTOMA, LOW GRADE
     Route: 042
     Dates: start: 20091201
  3. ONDANSETRON HYDROCHLORIDE [Concomitant]
     Indication: PREMEDICATION
     Route: 042
     Dates: start: 20091201

REACTIONS (4)
  - VOMITING [None]
  - FACE OEDEMA [None]
  - CYANOSIS [None]
  - TACHYCARDIA [None]
